FAERS Safety Report 10509005 (Version 2)
Quarter: 2014Q4

REPORT INFORMATION
  Report Type: Report from Study
  Country: US (occurrence: US)
  Receive Date: 20141009
  Receipt Date: 20141009
  Transmission Date: 20150528
  Serious: Yes (Other)
  Sender: FDA-Public Use
  Company Number: PHEH2014US009964

PATIENT
  Age: 26 Year
  Sex: Female

DRUGS (2)
  1. TOBI PODHALER [Suspect]
     Active Substance: TOBRAMYCIN
     Indication: CYSTIC FIBROSIS
     Dosage: TWICE A DAY, EVERY OTHER MONTH
     Dates: start: 2013
  2. TOBI PODHALER [Suspect]
     Active Substance: TOBRAMYCIN
     Dosage: UNK
     Dates: start: 20140501

REACTIONS (6)
  - Pulmonary function test decreased [Unknown]
  - Muscular weakness [Unknown]
  - Dysphonia [Unknown]
  - Oxygen consumption decreased [Recovered/Resolved]
  - Cough [Recovered/Resolved]
  - Vertigo [Unknown]

NARRATIVE: CASE EVENT DATE: 20140512
